FAERS Safety Report 8922062 (Version 1)
Quarter: 2012Q4

REPORT INFORMATION
  Report Type: 
  Country: US (occurrence: US)
  Receive Date: 20121123
  Receipt Date: 20121123
  Transmission Date: 20130627
  Serious: Yes (Disabling)
  Sender: FDA-Public Use
  Company Number: US-ABBOTT-12P-163-1008627-00

PATIENT
  Sex: Female

DRUGS (12)
  1. TRICOR [Suspect]
     Indication: BLOOD CHOLESTEROL INCREASED
  2. TRICOR [Suspect]
     Indication: BLOOD TRIGLYCERIDES INCREASED
  3. LIPITOR [Suspect]
     Indication: BLOOD CHOLESTEROL INCREASED
  4. LIPITOR [Suspect]
     Indication: BLOOD TRIGLYCERIDES INCREASED
  5. GABAPENTIN [Suspect]
     Indication: FACIAL PAIN
  6. GABAPENTIN [Suspect]
     Indication: HYPOAESTHESIA
     Dosage: Dosage increased
  7. GABAPENTIN [Suspect]
     Indication: EAR PAIN
  8. GABAPENTIN [Suspect]
     Indication: NECK PAIN
  9. TRAMADOL [Suspect]
     Indication: PRODUCT USED FOR UNKNOWN INDICATION
  10. HYDROCHLOROTHIAZIDE [Concomitant]
     Indication: PRODUCT USED FOR UNKNOWN INDICATION
  11. AMLODIPINE BESYLATE [Concomitant]
     Indication: PRODUCT USED FOR UNKNOWN INDICATION
  12. LISINOPRIL [Concomitant]
     Indication: PRODUCT USED FOR UNKNOWN INDICATION

REACTIONS (12)
  - Hypertension [Unknown]
  - Stress at work [Unknown]
  - Impaired work ability [Unknown]
  - Headache [Unknown]
  - Musculoskeletal pain [Unknown]
  - Facial pain [Unknown]
  - Neck pain [Unknown]
  - Ear pain [Unknown]
  - Hypoaesthesia [Unknown]
  - Somnolence [Unknown]
  - Occupational physical problem [Unknown]
  - Dizziness [Unknown]
